FAERS Safety Report 9858203 (Version 1)
Quarter: 2014Q1

REPORT INFORMATION
  Report Type: Spontaneous
  Country: US (occurrence: None)
  Receive Date: 20140129
  Receipt Date: 20140129
  Transmission Date: 20141002
  Serious: Yes (Hospitalization)
  Sender: FDA-Public Use
  Company Number: None

PATIENT
  Age: 72 Year
  Sex: Male
  Weight: 85.5 kg

DRUGS (1)
  1. HYDROCHLOROTHIAZIDE [Suspect]
     Dates: start: 19921209, end: 20130405

REACTIONS (4)
  - Dizziness [None]
  - Confusional state [None]
  - Hyponatraemia [None]
  - Electrocardiogram abnormal [None]
